FAERS Safety Report 5556362-5 (Version None)
Quarter: 2007Q4

REPORT INFORMATION
  Report Type: 
  Country: None (occurrence: None)
  Receive Date: 20071211
  Receipt Date: 20071129
  Transmission Date: 20080405
  Serious: Yes (Life-Threatening, Hospitalization, Disabling)
  Sender: FDA-Public Use
  Company Number: 2007SP021844

PATIENT
  Age: 57 Year
  Sex: Male

DRUGS (8)
  1. INTRON A [Suspect]
     Indication: MALIGNANT MELANOMA
     Dosage: 28 MIU;QD;IV
     Route: 042
     Dates: start: 20070910, end: 20070925
  2. ACTOS [Concomitant]
  3. PERCOCET [Concomitant]
  4. DIOVAN [Concomitant]
  5. CLONIDINE [Concomitant]
  6. PROCHLORPERAZINE [Concomitant]
  7. ASPIRIN [Concomitant]
  8. NEXIUM [Concomitant]

REACTIONS (23)
  - ALANINE AMINOTRANSFERASE INCREASED [None]
  - ASPARTATE AMINOTRANSFERASE INCREASED [None]
  - BLOOD ALKALINE PHOSPHATASE INCREASED [None]
  - BLOOD PRESSURE INADEQUATELY CONTROLLED [None]
  - BLOOD PRESSURE INCREASED [None]
  - CATHETER RELATED INFECTION [None]
  - CHEST PAIN [None]
  - DECREASED APPETITE [None]
  - DIALYSIS [None]
  - ENTEROCOCCAL INFECTION [None]
  - HAEMODIALYSIS [None]
  - HEADACHE [None]
  - IRON DEFICIENCY ANAEMIA [None]
  - NEPHRITIS INTERSTITIAL [None]
  - NO THERAPEUTIC RESPONSE [None]
  - PALPITATIONS [None]
  - RENAL FAILURE ACUTE [None]
  - RENAL TUBULAR NECROSIS [None]
  - SINUS TACHYCARDIA [None]
  - STAPHYLOCOCCAL INFECTION [None]
  - THROMBOCYTOPENIA [None]
  - VENTRICULAR EXTRASYSTOLES [None]
  - WEIGHT DECREASED [None]
